FAERS Safety Report 15849079 (Version 1)
Quarter: 2019Q1

REPORT INFORMATION
  Report Type: Spontaneous
  Country: US (occurrence: US)
  Receive Date: 20190121
  Receipt Date: 20190121
  Transmission Date: 20190417
  Serious: Yes (Life-Threatening, Other)
  Sender: FDA-Public Use
  Company Number: US-LINDE-US-LHC-2019010

PATIENT
  Age: 44 Year
  Sex: Female

DRUGS (1)
  1. CARBON DIOXIDE (GENERIC) [Suspect]
     Active Substance: CARBON DIOXIDE
     Indication: RECTAL PROLAPSE REPAIR

REACTIONS (2)
  - Traumatic liver injury [Unknown]
  - Air embolism [Recovered/Resolved]
